FAERS Safety Report 18737660 (Version 2)
Quarter: 2021Q1

REPORT INFORMATION
  Report Type: Report from Study
  Country: None (occurrence: US)
  Receive Date: 20210113
  Receipt Date: 20210114
  Transmission Date: 20210419
  Serious: Yes (Hospitalization, Other)
  Sender: FDA-Public Use
  Company Number: US-ABBVIE-21K-163-3718266-00

PATIENT
  Age: 60 Year
  Sex: Female

DRUGS (2)
  1. RINVOQ [Suspect]
     Active Substance: UPADACITINIB
     Indication: RHEUMATOID ARTHRITIS
     Route: 048
  2. HUMIRA [Suspect]
     Active Substance: ADALIMUMAB
     Indication: RHEUMATOID ARTHRITIS
     Route: 058

REACTIONS (16)
  - Memory impairment [Not Recovered/Not Resolved]
  - Eye injury [Recovered/Resolved]
  - Near death experience [Recovering/Resolving]
  - Fall [Not Recovered/Not Resolved]
  - Wrist fracture [Not Recovered/Not Resolved]
  - Infection [Recovering/Resolving]
  - Abscess limb [Unknown]
  - Balance disorder [Not Recovered/Not Resolved]
  - Hand fracture [Not Recovered/Not Resolved]
  - Lymphadenopathy [Recovering/Resolving]
  - Head injury [Not Recovered/Not Resolved]
  - Fall [Recovered/Resolved]
  - Drug ineffective [Recovered/Resolved]
  - Wound infection [Recovering/Resolving]
  - Emotional distress [Recovering/Resolving]
  - Peripheral swelling [Unknown]

NARRATIVE: CASE EVENT DATE: 202012
